FAERS Safety Report 14858421 (Version 1)
Quarter: 2018Q2

REPORT INFORMATION
  Report Type: Spontaneous
  Country: FR (occurrence: FR)
  Receive Date: 20180508
  Receipt Date: 20180508
  Transmission Date: 20180711
  Serious: Yes (Hospitalization)
  Sender: FDA-Public Use
  Company Number: FR-MERCK KGAA-2047357

PATIENT
  Age: 57 Year
  Sex: Female

DRUGS (1)
  1. NOVOTHYROX [Suspect]
     Active Substance: LEVOTHYROXINE SODIUM
     Indication: THYROID DISORDER

REACTIONS (38)
  - Abdominal pain [None]
  - C-reactive protein increased [None]
  - Blood immunoglobulin A increased [None]
  - Dizziness [None]
  - Amnesia [None]
  - Alopecia [None]
  - Diarrhoea [None]
  - Tachycardia [None]
  - Pain [None]
  - Blood urea decreased [None]
  - Insomnia [None]
  - Discomfort [None]
  - Feeling abnormal [None]
  - Blood folate abnormal [None]
  - Nervousness [None]
  - Weight increased [None]
  - Headache [None]
  - Agitation [None]
  - Myalgia [None]
  - Depressed mood [None]
  - Loss of libido [None]
  - Abnormal weight gain [None]
  - Nephropathy [None]
  - Fatigue [None]
  - Depression [None]
  - Eosinophil count increased [None]
  - Blood cholesterol increased [None]
  - Abdominal pain upper [None]
  - Malaise [None]
  - Bone pain [None]
  - Dyspnoea [None]
  - Dry skin [None]
  - Vision blurred [None]
  - Muscle spasms [None]
  - Dysstasia [None]
  - Blood triglycerides increased [None]
  - Eye disorder [None]
  - Decreased appetite [None]

NARRATIVE: CASE EVENT DATE: 20170626
